FAERS Safety Report 14180364 (Version 1)
Quarter: 2017Q4

REPORT INFORMATION
  Report Type: Spontaneous
  Country: US (occurrence: US)
  Receive Date: 20171110
  Receipt Date: 20171110
  Transmission Date: 20180321
  Serious: No
  Sender: FDA-Public Use
  Company Number: US-OTSUKA-2017_016956

PATIENT
  Age: 54 Year
  Sex: Female

DRUGS (1)
  1. NUEDEXTA [Suspect]
     Active Substance: DEXTROMETHORPHAN HYDROBROMIDE\QUINIDINE SULFATE
     Indication: PRODUCT USED FOR UNKNOWN INDICATION
     Dosage: UNK
     Route: 065
     Dates: end: 20170626

REACTIONS (6)
  - Dysphonia [Unknown]
  - Gait disturbance [Unknown]
  - Disturbance in social behaviour [Unknown]
  - Feeling abnormal [Unknown]
  - Limb discomfort [Unknown]
  - Drug interaction [Unknown]

NARRATIVE: CASE EVENT DATE: 201706
